FAERS Safety Report 9411923 (Version 3)
Quarter: 2014Q2

REPORT INFORMATION
  Report Type: Spontaneous
  Country: GB (occurrence: GB)
  Receive Date: 20130722
  Receipt Date: 20140509
  Transmission Date: 20141212
  Serious: Yes (Hospitalization, Disabling)
  Sender: FDA-Public Use
  Company Number: PHFR2013GB003877

PATIENT
  Age: 50 Year
  Sex: Male
  Weight: 69.9 kg

DRUGS (4)
  1. CLOZARIL [Suspect]
     Dosage: UNK
     Route: 048
     Dates: start: 20050818
  2. CLOZAPINE [Concomitant]
     Indication: SCHIZOPHRENIA
     Dosage: 100 MG, UNK
     Route: 048
     Dates: start: 2002
  3. CLOZAPINE [Concomitant]
     Dosage: 250 MG, UNK
     Route: 048
  4. SODIUM VALPROATE [Concomitant]
     Dosage: 750 MG, BID
     Route: 048
     Dates: start: 2002

REACTIONS (4)
  - Mental impairment [Recovering/Resolving]
  - Infection [Unknown]
  - Monocyte count increased [Recovered/Resolved]
  - Differential white blood cell count abnormal [Recovered/Resolved]
